FAERS Safety Report 18744947 (Version 1)
Quarter: 2021Q1

REPORT INFORMATION
  Report Type: Spontaneous
  Country: US (occurrence: US)
  Receive Date: 20210115
  Receipt Date: 20210115
  Transmission Date: 20210419
  Serious: Yes (Life-Threatening, Hospitalization)
  Sender: FDA-Public Use
  Company Number: US-STRIDES ARCOLAB LIMITED-2021SP000640

PATIENT
  Age: 63 Year
  Sex: Male

DRUGS (1)
  1. POTASSIUM CHLORIDE. [Suspect]
     Active Substance: POTASSIUM CHLORIDE
     Indication: PRODUCT USED FOR UNKNOWN INDICATION
     Dosage: INGESTED 60 POTASSIUM?CHLORIDE (KCL) 10 MILLIEQUIVALENT TABLETS (23.4 GRAMS)
     Route: 048

REACTIONS (6)
  - Asthenia [Unknown]
  - Intentional overdose [Unknown]
  - Confusional state [Unknown]
  - Mental status changes [Unknown]
  - Hyperkalaemia [Unknown]
  - Atrial fibrillation [Unknown]
